FAERS Safety Report 16145341 (Version 1)
Quarter: 2019Q2

REPORT INFORMATION
  Report Type: Spontaneous
  Country: US (occurrence: US)
  Receive Date: 20190402
  Receipt Date: 20190402
  Transmission Date: 20190711
  Serious: No
  Sender: FDA-Public Use
  Company Number: US-AUROBINDO-AUR-APU-2018-055112

PATIENT

DRUGS (3)
  1. CARBATOL [Concomitant]
     Indication: PRODUCT USED FOR UNKNOWN INDICATION
     Dosage: UNK 1 TABLET IN THE MORNING AND 1 TABLET IN THE NIGHT
     Route: 065
  2. VERAPAMIL [Concomitant]
     Active Substance: VERAPAMIL HYDROCHLORIDE
     Indication: CARDIAC DISORDER
     Dosage: UNK
  3. SERTRALINE HYDROCHLORIDE TABLETS 100MG [Suspect]
     Active Substance: SERTRALINE HYDROCHLORIDE
     Indication: SEIZURE
     Dosage: UNK 1 TABLET IN THE MORNING AND 1 TABLET IN THE NIGHT
     Route: 065

REACTIONS (3)
  - Wrong product administered [Unknown]
  - Off label use [Unknown]
  - Sedation [Recovered/Resolved]
